FAERS Safety Report 6285396-0 (Version None)
Quarter: 2009Q3

REPORT INFORMATION
  Report Type: 
  Country: None (occurrence: None)
  Receive Date: 20090723
  Receipt Date: 20090720
  Transmission Date: 20100115
  Serious: Yes (Hospitalization)
  Sender: FDA-Public Use
  Company Number: 2009SP015887

PATIENT
  Age: 87 Year
  Sex: Female

DRUGS (3)
  1. BETAMETHASONE [Suspect]
     Indication: DRUG USE FOR UNKNOWN INDICATION
     Dosage: 1 DF, QD. PO
     Route: 048
     Dates: start: 20090401, end: 20090401
  2. MOXIFLOXACIN HYDROCHLORIDE [Suspect]
     Indication: DRUG USE FOR UNKNOWN INDICATION
     Dosage: 400 MG, QD, PO
     Route: 048
     Dates: start: 20090401, end: 20090401
  3. CAPTOPRIL AND HYDROCHLOROTHIAZIDE [Concomitant]

REACTIONS (5)
  - DERMATITIS EXFOLIATIVE [None]
  - DRUG HYPERSENSITIVITY [None]
  - FACE OEDEMA [None]
  - HYPOTENSION [None]
  - MALAISE [None]
